FAERS Safety Report 16140688 (Version 1)
Quarter: 2019Q2

REPORT INFORMATION
  Report Type: Spontaneous
  Country: US (occurrence: US)
  Receive Date: 20190401
  Receipt Date: 20190401
  Transmission Date: 20190711
  Serious: No
  Sender: FDA-Public Use
  Company Number: US-GLAXOSMITHKLINE-US2019GSK054432

PATIENT
  Age: 80 Year

DRUGS (1)
  1. TRELEGY ELLIPTA [Suspect]
     Active Substance: FLUTICASONE FUROATE\UMECLIDINIUM BROMIDE\VILANTEROL TRIFENATATE
     Indication: PRODUCT USED FOR UNKNOWN INDICATION
     Dosage: UNK
     Route: 055

REACTIONS (7)
  - Papule [Unknown]
  - Hypersensitivity [Unknown]
  - Pruritus [Recovered/Resolved]
  - Eye pruritus [Unknown]
  - Scratch [Unknown]
  - Pigmentation disorder [Recovered/Resolved]
  - Lacrimation increased [Unknown]
